FAERS Safety Report 14786101 (Version 3)
Quarter: 2023Q4

REPORT INFORMATION
  Report Type: Spontaneous
  Country: JP (occurrence: JP)
  Receive Date: 20180420
  Receipt Date: 20231118
  Transmission Date: 20240109
  Serious: Yes (Other)
  Sender: FDA-Public Use
  Company Number: None

PATIENT
  Age: 9 Month
  Sex: Male
  Weight: 10.89 kg

DRUGS (38)
  1. SABRIL [Suspect]
     Active Substance: VIGABATRIN
     Indication: Infantile spasms
     Dosage: 50 MG/KG/DAY, BID
     Route: 048
     Dates: start: 20170612, end: 20170615
  2. SABRIL [Suspect]
     Active Substance: VIGABATRIN
     Dosage: UNK, BID
     Route: 048
     Dates: start: 20170616, end: 20170619
  3. SABRIL [Suspect]
     Active Substance: VIGABATRIN
     Dosage: UNK, BID
     Route: 048
     Dates: start: 20170620, end: 20170622
  4. SABRIL [Suspect]
     Active Substance: VIGABATRIN
     Dosage: UNK, BID
     Route: 048
     Dates: start: 20170623, end: 20170626
  5. SABRIL [Suspect]
     Active Substance: VIGABATRIN
     Dosage: UNK, BID
     Route: 048
     Dates: start: 20170627, end: 20170713
  6. SABRIL [Suspect]
     Active Substance: VIGABATRIN
     Dosage: UNK, BID
     Route: 048
     Dates: start: 20170714, end: 20170717
  7. SABRIL [Suspect]
     Active Substance: VIGABATRIN
     Dosage: UNK, BID
     Route: 048
     Dates: start: 20170718, end: 20170721
  8. CLOBAZAM [Concomitant]
     Active Substance: CLOBAZAM
     Indication: Infantile spasms
     Dosage: 1 MG, QD
     Route: 048
     Dates: start: 20171221, end: 20180103
  9. CLOBAZAM [Concomitant]
     Active Substance: CLOBAZAM
     Dosage: 2 MG, QD
     Route: 048
     Dates: start: 20180104
  10. VALPROATE SODIUM [Concomitant]
     Active Substance: VALPROATE SODIUM
     Indication: Infantile spasms
     Dosage: 100 MG, QD
     Route: 048
     Dates: start: 20170925, end: 20170927
  11. VALPROATE SODIUM [Concomitant]
     Active Substance: VALPROATE SODIUM
     Dosage: 150 MG, QD
     Route: 048
     Dates: start: 20170928, end: 20171001
  12. VALPROATE SODIUM [Concomitant]
     Active Substance: VALPROATE SODIUM
     Dosage: 200 MG, QD
     Route: 048
     Dates: start: 20171002, end: 20171005
  13. VALPROATE SODIUM [Concomitant]
     Active Substance: VALPROATE SODIUM
     Dosage: 250 MG, QD
     Route: 048
     Dates: start: 20171006, end: 20171018
  14. VALPROATE SODIUM [Concomitant]
     Active Substance: VALPROATE SODIUM
     Dosage: 300 MG, QD
     Route: 048
     Dates: start: 20171019, end: 20171031
  15. VALPROATE SODIUM [Concomitant]
     Active Substance: VALPROATE SODIUM
     Dosage: 350 MG, QD
     Route: 048
     Dates: start: 20171101, end: 20171128
  16. VALPROATE SODIUM [Concomitant]
     Active Substance: VALPROATE SODIUM
     Dosage: 400 MG, QD
     Route: 048
     Dates: start: 20171129, end: 20171220
  17. VALPROATE SODIUM [Concomitant]
     Active Substance: VALPROATE SODIUM
     Dosage: 350 MG, QD
     Route: 048
     Dates: start: 20171221
  18. ZONISAMIDE [Concomitant]
     Active Substance: ZONISAMIDE
     Indication: Infantile spasms
     Dosage: 20 MG, QD
     Route: 048
     Dates: start: 20170818, end: 20170821
  19. ZONISAMIDE [Concomitant]
     Active Substance: ZONISAMIDE
     Dosage: 40 MG, QD
     Route: 048
     Dates: start: 20170822, end: 20170828
  20. ZONISAMIDE [Concomitant]
     Active Substance: ZONISAMIDE
     Dosage: 60 MG, QD
     Route: 048
     Dates: start: 20170829, end: 20170831
  21. ZONISAMIDE [Concomitant]
     Active Substance: ZONISAMIDE
     Dosage: 80 MG, QD
     Route: 048
     Dates: start: 20170901, end: 20170912
  22. ZONISAMIDE [Concomitant]
     Active Substance: ZONISAMIDE
     Dosage: 100 MG, QD
     Route: 048
     Dates: start: 20170913, end: 20170921
  23. ZONISAMIDE [Concomitant]
     Active Substance: ZONISAMIDE
     Dosage: 110 MG, QD
     Route: 048
     Dates: start: 20170922, end: 20170924
  24. ZONISAMIDE [Concomitant]
     Active Substance: ZONISAMIDE
     Dosage: 90 MG, QD
     Route: 048
     Dates: start: 20170925, end: 20170928
  25. ZONISAMIDE [Concomitant]
     Active Substance: ZONISAMIDE
     Dosage: 70 MG, QD
     Route: 048
     Dates: start: 20170929, end: 20171005
  26. ZONISAMIDE [Concomitant]
     Active Substance: ZONISAMIDE
     Dosage: 50 MG, QD
     Route: 048
     Dates: start: 20171006, end: 20171018
  27. ZONISAMIDE [Concomitant]
     Active Substance: ZONISAMIDE
     Dosage: 30 MG, QD
     Route: 048
     Dates: start: 20171019, end: 20171031
  28. ZONISAMIDE [Concomitant]
     Active Substance: ZONISAMIDE
     Dosage: 15 MG, QD
     Route: 048
     Dates: start: 20171101, end: 20171129
  29. VITAMIN B6 [Concomitant]
     Active Substance: PYRIDOXINE HYDROCHLORIDE
     Indication: Infantile spasms
     Dosage: 100 MG, QD
     Route: 048
     Dates: start: 20170516, end: 20170518
  30. VITAMIN B6 [Concomitant]
     Active Substance: PYRIDOXINE HYDROCHLORIDE
     Dosage: 200 MG, QD
     Route: 048
     Dates: start: 20170519, end: 20170522
  31. VITAMIN B6 [Concomitant]
     Active Substance: PYRIDOXINE HYDROCHLORIDE
     Dosage: 300 MG, QD
     Route: 048
     Dates: start: 20170523, end: 20170525
  32. VITAMIN B6 [Concomitant]
     Active Substance: PYRIDOXINE HYDROCHLORIDE
     Dosage: 400 MG, QD
     Route: 048
     Dates: start: 20170526, end: 20170530
  33. EPINASTINE HYDROCHLORIDE [Concomitant]
     Active Substance: EPINASTINE HYDROCHLORIDE
     Indication: Product used for unknown indication
     Dosage: 2 MG, QD
     Route: 048
     Dates: start: 20170510, end: 20170622
  34. RAMELTEON [Concomitant]
     Active Substance: RAMELTEON
     Indication: Product used for unknown indication
     Dosage: 2 MG, QD
     Route: 048
     Dates: start: 20170619, end: 20170629
  35. LEVOFLOXACIN [Concomitant]
     Active Substance: LEVOFLOXACIN
     Indication: Product used for unknown indication
     Route: 047
     Dates: start: 20170512, end: 20170713
  36. BROMFENAC SODIUM [Concomitant]
     Active Substance: BROMFENAC SODIUM
     Indication: Product used for unknown indication
     Dosage: UNK UNK, BID
     Route: 047
     Dates: start: 20170512
  37. BETAMETHASONE [Concomitant]
     Active Substance: BETAMETHASONE\BETAMETHASONE DIPROPIONATE
     Indication: Product used for unknown indication
     Dosage: UNK UNK, QID
     Route: 047
     Dates: start: 20170512, end: 20170713
  38. FLUOROMETHOLONE [Concomitant]
     Active Substance: FLUOROMETHOLONE
     Indication: Product used for unknown indication
     Dosage: UNK
     Route: 047
     Dates: start: 20170714

REACTIONS (3)
  - Retinogram abnormal [Unknown]
  - Hypertension [Recovered/Resolved]
  - Drug ineffective [Unknown]

NARRATIVE: CASE EVENT DATE: 20170721
